FAERS Safety Report 11321391 (Version 3)
Quarter: 2018Q3

REPORT INFORMATION
  Report Type: Spontaneous
  Country: US (occurrence: US)
  Receive Date: 20150729
  Receipt Date: 20180731
  Transmission Date: 20181010
  Serious: Yes (Hospitalization, Disabling)
  Sender: FDA-Public Use
  Company Number: US-ENDO PHARMACEUTICALS INC.-2015-001268

PATIENT
  Age: 58 Year
  Sex: Male
  Weight: 124.72 kg

DRUGS (7)
  1. TESTOPEL [Suspect]
     Active Substance: TESTOSTERONE
     Dosage: (10 PELLETS) 75 MG EACH, EVERY 6 MONTHS
     Route: 058
     Dates: start: 20130613
  2. TESTOPEL [Suspect]
     Active Substance: TESTOSTERONE
     Dosage: (12 PELLETS) 75 MG (EACH), EVERY 6 MONTHS
     Route: 058
     Dates: start: 20131226
  3. ANDROGEL [Suspect]
     Active Substance: TESTOSTERONE
     Indication: ANDROGEN REPLACEMENT THERAPY
     Dosage: UNK, UNK
     Route: 065
     Dates: start: 201210, end: 201211
  4. TESTOPEL [Suspect]
     Active Substance: TESTOSTERONE
     Indication: ANDROGEN REPLACEMENT THERAPY
     Dosage: UNK UNKNOWN, EVERY 6 MONTHS
     Route: 058
     Dates: start: 201211, end: 201503
  5. TESTOPEL [Suspect]
     Active Substance: TESTOSTERONE
     Dosage: (6 PELLETS) 75 MG (EACH), EVERY 6 MONTHS
     Route: 058
     Dates: start: 20150305
  6. TESTOPEL [Suspect]
     Active Substance: TESTOSTERONE
     Dosage: (10 PELLETS) 75 MG EACH, EVERY 6 MONTHS
     Route: 058
     Dates: start: 20121115
  7. TESTOPEL [Suspect]
     Active Substance: TESTOSTERONE
     Dosage: (12 PELLETS) 75 MG (EACH), EVERY 6 MONTHS
     Route: 058
     Dates: start: 20140814

REACTIONS (3)
  - Pulmonary embolism [Not Recovered/Not Resolved]
  - Overdose [Unknown]
  - Deep vein thrombosis [Not Recovered/Not Resolved]

NARRATIVE: CASE EVENT DATE: 20150328
